FAERS Safety Report 17325178 (Version 1)
Quarter: 2020Q1

REPORT INFORMATION
  Report Type: Spontaneous
  Country: US (occurrence: US)
  Receive Date: 20200126
  Receipt Date: 20200126
  Transmission Date: 20200409
  Serious: No
  Sender: FDA-Public Use
  Company Number: None

PATIENT
  Age: 58 Year
  Sex: Female
  Weight: 78.3 kg

DRUGS (12)
  1. SPIRIVA [Suspect]
     Active Substance: TIOTROPIUM BROMIDE MONOHYDRATE
  2. CALTRATE WITH VITAMIN D [Concomitant]
     Active Substance: CALCIUM CARBONATE\CHOLECALCIFEROL
  3. POTASSIUM [Concomitant]
     Active Substance: POTASSIUM
  4. PROBIOTICS [Concomitant]
     Active Substance: PROBIOTICS NOS
  5. ZAFIRLUKAST. [Suspect]
     Active Substance: ZAFIRLUKAST
     Indication: ASTHMA
     Dosage: ?          QUANTITY:1 CAPSULE(S);?
     Route: 048
     Dates: start: 20200107, end: 20200121
  6. ALLOPURINOL. [Concomitant]
     Active Substance: ALLOPURINOL
  7. ADVAIR HFA [Concomitant]
     Active Substance: FLUTICASONE PROPIONATE\SALMETEROL XINAFOATE
  8. FLOVENT [Concomitant]
     Active Substance: FLUTICASONE PROPIONATE
  9. FLUTICASONE PROPIONATE/SALMETEROL [Suspect]
     Active Substance: FLUTICASONE PROPIONATE\SALMETEROL XINAFOATE
     Indication: ASTHMA
     Dosage: ?          OTHER STRENGTH:MCG;QUANTITY:1 PUFF(S);?
     Route: 048
     Dates: start: 20200107, end: 20200121
  10. ZAFIRLUKAST. [Concomitant]
     Active Substance: ZAFIRLUKAST
  11. MULTIPLE VITAMINS [Concomitant]
     Active Substance: VITAMINS
  12. SPIRIVA [Concomitant]
     Active Substance: TIOTROPIUM BROMIDE MONOHYDRATE

REACTIONS (9)
  - Arthralgia [None]
  - Cough [None]
  - Dyspnoea [None]
  - Muscle spasms [None]
  - Muscular weakness [None]
  - Swelling [None]
  - Foreign body sensation in eyes [None]
  - Pain [None]
  - Ear pain [None]

NARRATIVE: CASE EVENT DATE: 20200110
